FAERS Safety Report 21694659 (Version 1)
Quarter: 2022Q4

REPORT INFORMATION
  Report Type: Spontaneous
  Country: US (occurrence: None)
  Receive Date: 20221206
  Receipt Date: 20221206
  Transmission Date: 20230113
  Serious: No
  Sender: FDA-Public Use
  Company Number: None

PATIENT
  Age: 45 Year
  Sex: Male
  Weight: 130.63 kg

DRUGS (1)
  1. OCREVUS [Suspect]
     Active Substance: OCRELIZUMAB
     Indication: Multiple sclerosis
     Route: 041
     Dates: start: 20221206

REACTIONS (5)
  - Nausea [None]
  - Vomiting [None]
  - Chills [None]
  - Fatigue [None]
  - Hypoaesthesia [None]

NARRATIVE: CASE EVENT DATE: 20221201
